FAERS Safety Report 8234835 (Version 3)
Quarter: 2014Q1

REPORT INFORMATION
  Report Type: Spontaneous
  Country: US (occurrence: US)
  Receive Date: 20111108
  Receipt Date: 20140305
  Transmission Date: 20141002
  Serious: Yes (Other)
  Sender: FDA-Public Use
  Company Number: US-JNJFOC-20111101709

PATIENT
  Age: 56 Year
  Sex: Female
  Weight: 58.97 kg

DRUGS (4)
  1. TRAMADOL ER [Suspect]
     Indication: INJURY
     Route: 048
     Dates: start: 20110927, end: 201110
  2. TRAMADOL ER [Suspect]
     Indication: INJURY
     Route: 048
     Dates: start: 201108, end: 201108
  3. NUCYNTA [Suspect]
     Indication: INJURY
     Route: 048
     Dates: start: 201108, end: 201108
  4. NUCYNTA [Suspect]
     Indication: INJURY
     Route: 048
     Dates: start: 20110923, end: 20110924

REACTIONS (9)
  - Fibromyalgia [Recovered/Resolved]
  - Fall [Recovered/Resolved]
  - Dizziness [Recovered/Resolved]
  - Chills [Recovered/Resolved]
  - Nausea [Recovered/Resolved]
  - Dysphagia [Recovered/Resolved]
  - Insomnia [Recovered/Resolved]
  - Treatment noncompliance [Recovered/Resolved]
  - Wrong technique in drug usage process [Recovered/Resolved]
